FAERS Safety Report 5273217-4 (Version None)
Quarter: 2007Q1

REPORT INFORMATION
  Report Type: 
  Country: None (occurrence: None)
  Receive Date: 20070319
  Receipt Date: 20070307
  Transmission Date: 20070707
  Serious: Yes (Other)
  Sender: FDA-Public Use
  Company Number: 2007SP004503

PATIENT
  Sex: Female

DRUGS (2)
  1. ALBUTEROL SULATE [Suspect]
     Indication: DRUG USE FOR UNKNOWN INDICATION
     Dosage: PO
     Route: 048
  2. WARRICK ALBUTEROL [Concomitant]

REACTIONS (1)
  - THROAT TIGHTNESS [None]
